FAERS Safety Report 7829282-0 (Version None)
Quarter: 2011Q4

REPORT INFORMATION
  Report Type: 
  Country: None (occurrence: None)
  Receive Date: 20111020
  Receipt Date: 20111001
  Transmission Date: 20120403
  Serious: Yes (Hospitalization)
  Sender: FDA-Public Use
  Company Number: IT-BAYER-2011-093414

PATIENT
  Age: 8 Year
  Sex: Male

DRUGS (1)
  1. ASPIRIN [Suspect]
     Indication: CONGENITAL PULMONARY VALVE ATRESIA
     Dosage: DAILY DOSE 50 MG
     Route: 048
     Dates: start: 20050110, end: 20110814

REACTIONS (1)
  - RECTAL HAEMORRHAGE [None]
